FAERS Safety Report 4779075-6 (Version None)
Quarter: 2005Q3

REPORT INFORMATION
  Report Type: 
  Country: None (occurrence: None)
  Receive Date: 20050914
  Receipt Date: 20050603
  Transmission Date: 20060218
  Serious: Yes (Other)
  Sender: FDA-Public Use
  Company Number: 406962

PATIENT
  Age: 65 Year
  Sex: Female
  Weight: 63.5 kg

DRUGS (4)
  1. BONIVA [Suspect]
     Indication: OSTEOPOROSIS
     Dosage: 150MG 1 PER MONTH ORAL
     Route: 048
     Dates: start: 20050501
  2. CALCIUM CONTINUING (CALCIUM) [Concomitant]
  3. FOSAMAX [Concomitant]
  4. ACTONEL [Concomitant]

REACTIONS (3)
  - ERYTHEMA [None]
  - HAEMORRHAGE [None]
  - RASH [None]
